FAERS Safety Report 10169325 (Version 2)
Quarter: 2014Q2

REPORT INFORMATION
  Report Type: Spontaneous
  Country: US (occurrence: US)
  Receive Date: 20140513
  Receipt Date: 20140513
  Transmission Date: 20141212
  Serious: Yes (Life-Threatening, Hospitalization, Other)
  Sender: FDA-Public Use
  Company Number: US-RB-066460-14

PATIENT
  Age: 24 Month
  Sex: Male

DRUGS (1)
  1. BUPRENORPHINE/NALOXONE GENERIC [Suspect]
     Indication: ACCIDENTAL EXPOSURE TO PRODUCT BY CHILD
     Dosage: INGESTED A 2 MG TABLET ONCE
     Route: 048
     Dates: start: 20140412, end: 20140412

REACTIONS (7)
  - Accidental exposure to product by child [Recovered/Resolved]
  - Fatigue [Recovered/Resolved]
  - Irritability [Recovered/Resolved]
  - Vomiting [Recovered/Resolved]
  - Gait disturbance [Recovered/Resolved]
  - Cyanosis [Recovered/Resolved]
  - Respiratory arrest [Recovered/Resolved]
